FAERS Safety Report 6769703-8 (Version None)
Quarter: 2010Q2

REPORT INFORMATION
  Report Type: 
  Country: None (occurrence: None)
  Receive Date: 20100615
  Receipt Date: 20100609
  Transmission Date: 20101027
  Serious: Yes (Other)
  Sender: FDA-Public Use
  Company Number: US-SANOFI-AVENTIS-2010SA033977

PATIENT
  Sex: Female

DRUGS (5)
  1. PLAVIX [Suspect]
     Route: 048
  2. PLAVIX [Suspect]
     Route: 048
  3. ZIAC [Suspect]
     Route: 065
  4. QUINAPRIL [Concomitant]
  5. SIMVASTATIN [Concomitant]

REACTIONS (2)
  - CARDIAC DISORDER [None]
  - UNEVALUABLE EVENT [None]
